FAERS Safety Report 9332903 (Version 1)
Quarter: 2013Q2

REPORT INFORMATION
  Report Type: Spontaneous
  Country: SE (occurrence: SE)
  Receive Date: 20130606
  Receipt Date: 20130606
  Transmission Date: 20140414
  Serious: Yes (Other)
  Sender: FDA-Public Use
  Company Number: SE-MYLANLABS-2013S1011495

PATIENT
  Age: 62 Year
  Sex: Female

DRUGS (1)
  1. TAMOXIFEN [Suspect]
     Indication: BREAST CANCER
     Dates: end: 20121130

REACTIONS (6)
  - Hyperhidrosis [Unknown]
  - Neuralgia [Unknown]
  - Tooth discolouration [Unknown]
  - Cataract [Unknown]
  - Visual impairment [Unknown]
  - Musculoskeletal pain [Unknown]
